FAERS Safety Report 13512635 (Version 1)
Quarter: 2017Q2

REPORT INFORMATION
  Report Type: Spontaneous
  Country: US (occurrence: US)
  Receive Date: 20170504
  Receipt Date: 20170504
  Transmission Date: 20170830
  Serious: Yes (Hospitalization)
  Sender: FDA-Public Use
  Company Number: None

PATIENT
  Age: 76 Year
  Sex: Male
  Weight: 81.5 kg

DRUGS (8)
  1. CARDIZEM CD [Suspect]
     Active Substance: DILTIAZEM HYDROCHLORIDE
     Indication: HYPERTENSION
     Dosage: 240MG Q24HR PO
     Route: 048
  2. METOPROLOL TARTRATE. [Suspect]
     Active Substance: METOPROLOL TARTRATE
     Indication: HYPERTENSION
     Route: 048
  3. PLAVIX [Concomitant]
     Active Substance: CLOPIDOGREL BISULFATE
  4. NPH INSULIN [Concomitant]
     Active Substance: INSULIN BEEF
  5. ECOTRIN [Concomitant]
     Active Substance: ASPIRIN
  6. HCTZ [Concomitant]
     Active Substance: HYDROCHLOROTHIAZIDE
  7. LOSARTAN. [Concomitant]
     Active Substance: LOSARTAN
  8. LIPITOR [Concomitant]
     Active Substance: ATORVASTATIN CALCIUM

REACTIONS (2)
  - Incorrect dose administered [None]
  - Bradycardia [None]

NARRATIVE: CASE EVENT DATE: 20161007
